FAERS Safety Report 20946936 (Version 1)
Quarter: 2022Q2

REPORT INFORMATION
  Report Type: Spontaneous
  Country: US (occurrence: US)
  Receive Date: 20220610
  Receipt Date: 20220610
  Transmission Date: 20220721
  Serious: Yes (Hospitalization, Other)
  Sender: FDA-Public Use
  Company Number: US-ViiV Healthcare Limited-US2022GSK089507

PATIENT

DRUGS (11)
  1. LAMIVUDINE [Suspect]
     Active Substance: LAMIVUDINE
     Indication: HIV infection
     Dosage: 300 MG, 1D
  2. LAMIVUDINE [Suspect]
     Active Substance: LAMIVUDINE
     Dosage: UNK
  3. RITONAVIR [Concomitant]
     Active Substance: RITONAVIR
     Indication: HIV infection
     Dosage: 100 MG, 1D
  4. RITONAVIR [Concomitant]
     Active Substance: RITONAVIR
     Dosage: UNK
  5. ATAZANAVIR [Concomitant]
     Active Substance: ATAZANAVIR
     Indication: HIV infection
     Dosage: 300 MG, 1D
  6. ATAZANAVIR [Concomitant]
     Active Substance: ATAZANAVIR
     Dosage: UNK
  7. TENOFOVIR [Concomitant]
     Active Substance: TENOFOVIR
     Indication: HIV infection
     Dosage: 300 MG, 1D
  8. DOCUSATE SODIUM [Concomitant]
     Active Substance: DOCUSATE SODIUM
     Indication: Product used for unknown indication
     Dosage: 100 MG, BID
  9. LISINOPRIL [Concomitant]
     Active Substance: LISINOPRIL
     Indication: Hypertension
     Dosage: 5 MG, BID
  10. IBUPROFEN [Concomitant]
     Active Substance: IBUPROFEN
     Indication: Gout
     Dosage: 400 MG, TID AS NEEDED
  11. POTASSIUM CHLORIDE [Concomitant]
     Active Substance: POTASSIUM CHLORIDE
     Indication: Product used for unknown indication
     Dosage: 20 MG, 1D

REACTIONS (24)
  - Lactic acidosis [Recovered/Resolved]
  - Hyperlactacidaemia [Recovered/Resolved]
  - Dyspnoea [Unknown]
  - Tachypnoea [Unknown]
  - Mitral valve incompetence [Unknown]
  - Cardiac failure congestive [Unknown]
  - Cardiac failure [Unknown]
  - Renal failure [Unknown]
  - Congestive hepatopathy [Unknown]
  - Gallbladder enlargement [Unknown]
  - Mucosal dryness [Unknown]
  - Wheezing [Unknown]
  - Rales [Unknown]
  - Lung opacity [Unknown]
  - Bundle branch block left [Unknown]
  - Atrioventricular block first degree [Unknown]
  - Oedema due to hepatic disease [Unknown]
  - Hepatic vein dilatation [Unknown]
  - Cholelithiasis [Unknown]
  - Left ventricular dilatation [Unknown]
  - Right ventricular enlargement [Unknown]
  - Right ventricular dysfunction [Unknown]
  - Inferior vena cava dilatation [Unknown]
  - Confusional state [Unknown]
